FAERS Safety Report 21328842 (Version 1)
Quarter: 2022Q3

REPORT INFORMATION
  Report Type: Spontaneous
  Country: US (occurrence: US)
  Receive Date: 20220913
  Receipt Date: 20220913
  Transmission Date: 20221027
  Serious: No
  Sender: FDA-Public Use
  Company Number: US-SA-SAC20220908000681

PATIENT
  Sex: Female
  Weight: 108 kg

DRUGS (13)
  1. DUPIXENT [Suspect]
     Active Substance: DUPILUMAB
     Indication: Asthma
     Dosage: DOSE: 200 MG (1 SYRINGE) UNDER THE SKIN FREQUENCY: EVERY 2 WEEKS
     Route: 058
     Dates: start: 202106
  2. OMEPRAZOLE [Concomitant]
     Active Substance: OMEPRAZOLE
  3. POTASSIUM CHLORIDE [Concomitant]
     Active Substance: POTASSIUM CHLORIDE
  4. PHENTERMINE [Concomitant]
     Active Substance: PHENTERMINE
  5. LOSARTAN [Concomitant]
     Active Substance: LOSARTAN
  6. ALBUTEROL SULFATE [Concomitant]
     Active Substance: ALBUTEROL SULFATE
  7. IPRATROPIUM [Concomitant]
     Active Substance: IPRATROPIUM
  8. ALPRAZOLAM [Concomitant]
     Active Substance: ALPRAZOLAM
  9. ATORVASTATIN [Concomitant]
     Active Substance: ATORVASTATIN
  10. METOLAZONE [Concomitant]
     Active Substance: METOLAZONE
  11. BUDESONIDE [Concomitant]
     Active Substance: BUDESONIDE
  12. FUROSEMIDE [Concomitant]
     Active Substance: FUROSEMIDE
  13. NALOXONE [Concomitant]
     Active Substance: NALOXONE

REACTIONS (2)
  - Asthma [Recovering/Resolving]
  - Injection site bruising [Recovered/Resolved]
